FAERS Safety Report 20174129 (Version 1)
Quarter: 2021Q4

REPORT INFORMATION
  Report Type: Spontaneous
  Country: CN (occurrence: CN)
  Receive Date: 20211213
  Receipt Date: 20211213
  Transmission Date: 20220303
  Serious: Yes (Other)
  Sender: FDA-Public Use
  Company Number: None

PATIENT
  Age: 34 Year
  Sex: Female
  Weight: 77 kg

DRUGS (3)
  1. TRESIBA [Suspect]
     Active Substance: INSULIN DEGLUDEC
     Indication: Type 2 diabetes mellitus
     Dosage: 8 IU, QD
     Route: 058
     Dates: start: 20211101, end: 20211108
  2. LIXISENATIDE [Suspect]
     Active Substance: LIXISENATIDE
     Indication: Type 2 diabetes mellitus
     Dosage: 0.2 ML, QD
     Route: 058
     Dates: start: 20211101, end: 20211108
  3. HERBALS\DIAMMONIUM GLYCYRRHIZINATE [Concomitant]
     Active Substance: HERBALS\DIAMMONIUM GLYCYRRHIZINATE
     Indication: Type 2 diabetes mellitus
     Dosage: 150 MG, TID
     Route: 048
     Dates: start: 20211101, end: 20211108

REACTIONS (2)
  - Hepatic function abnormal [Recovering/Resolving]
  - Drug-induced liver injury [Unknown]

NARRATIVE: CASE EVENT DATE: 20211108
